FAERS Safety Report 24165730 (Version 1)
Quarter: 2024Q3

REPORT INFORMATION
  Report Type: Spontaneous
  Country: CA (occurrence: CA)
  Receive Date: 20240802
  Receipt Date: 20240802
  Transmission Date: 20241017
  Serious: Yes (Other)
  Sender: RECORDATI
  Company Number: CA-RECORDATI-2024005754

PATIENT

DRUGS (8)
  1. DACTINOMYCIN [Suspect]
     Active Substance: DACTINOMYCIN
     Indication: Atypical teratoid/rhabdoid tumour of CNS
     Dosage: UNK
  2. DACTINOMYCIN [Suspect]
     Active Substance: DACTINOMYCIN
     Indication: Off label use
  3. ALISERTIB [Suspect]
     Active Substance: ALISERTIB
     Indication: Atypical teratoid/rhabdoid tumour of CNS
     Dosage: 60.0 MG/M2
     Route: 048
  4. CYTARABINE [Suspect]
     Active Substance: CYTARABINE
     Indication: Atypical teratoid/rhabdoid tumour of CNS
     Dosage: 60.0 MG/M (POWDER FOR SOLUTION)
     Route: 037
  5. DOXORUBICIN [Suspect]
     Active Substance: DOXORUBICIN
     Indication: Atypical teratoid/rhabdoid tumour of CNS
     Dosage: SOLUTION (INTRAVENOUS), INJECTION
  6. ETOPOSIDE [Suspect]
     Active Substance: ETOPOSIDE
     Indication: Atypical teratoid/rhabdoid tumour of CNS
     Dosage: UNK
  7. HYDROCORTISONE [Suspect]
     Active Substance: HYDROCORTISONE\HYDROCORTISONE ACETATE
     Indication: Atypical teratoid/rhabdoid tumour of CNS
     Dosage: 30.0 MG/M2
     Route: 037
  8. METHOTREXATE [Suspect]
     Active Substance: METHOTREXATE
     Indication: Atypical teratoid/rhabdoid tumour of CNS
     Dosage: 15.0 MG/M2, INJECTION, SINGLE USE VIALS (SOLUTION INTRARTERIAL)
     Route: 037

REACTIONS (7)
  - Deafness [Recovering/Resolving]
  - Hemiparesis [Recovering/Resolving]
  - Speech disorder developmental [Recovering/Resolving]
  - Somnolence [Recovering/Resolving]
  - Neutropenia [Recovering/Resolving]
  - Drug ineffective [Recovered/Resolved]
  - Off label use [Recovered/Resolved]
